FAERS Safety Report 7039146-0 (Version None)
Quarter: 2010Q4

REPORT INFORMATION
  Report Type: 
  Country: None (occurrence: None)
  Receive Date: 20101007
  Receipt Date: 20101007
  Transmission Date: 20110411
  Serious: Yes (Other)
  Sender: FDA-Public Use
  Company Number: None

PATIENT
  Age: 63 Year
  Sex: Female
  Weight: 70.3075 kg

DRUGS (1)
  1. OXYCODONE AND ACETAMINOPHEN [Suspect]
     Indication: HEADACHE
     Dosage: 1-2 TABLETS EVERY 6 HRS PO
     Route: 048
     Dates: start: 20101002, end: 20101003

REACTIONS (6)
  - CONFUSIONAL STATE [None]
  - DECREASED APPETITE [None]
  - DRUG HYPERSENSITIVITY [None]
  - HALLUCINATION, AUDITORY [None]
  - INSOMNIA [None]
  - PRURITUS [None]
